FAERS Safety Report 25289289 (Version 1)
Quarter: 2025Q2

REPORT INFORMATION
  Report Type: Report from Study
  Country: CN (occurrence: CN)
  Receive Date: 20250509
  Receipt Date: 20250509
  Transmission Date: 20250717
  Serious: Yes (Life-Threatening, Other)
  Sender: PFIZER
  Company Number: CN-TAKEDA-2024TUS017213

PATIENT
  Age: 40 Year
  Sex: Female
  Weight: 60 kg

DRUGS (3)
  1. BRENTUXIMAB VEDOTIN [Suspect]
     Active Substance: BRENTUXIMAB VEDOTIN
     Indication: Hodgkin^s disease
     Dosage: 100 MILLIGRAM, Q3WEEKS
     Route: 041
     Dates: start: 20231116
  2. DECITABINE [Suspect]
     Active Substance: DECITABINE
     Indication: Hodgkin^s disease
     Route: 042
     Dates: start: 20231116
  3. SINTILIMAB [Concomitant]
     Active Substance: SINTILIMAB
     Indication: Hodgkin^s disease
     Route: 042
     Dates: start: 20240105, end: 20240105

REACTIONS (3)
  - Myelosuppression [Recovering/Resolving]
  - Haemoglobin decreased [Not Recovered/Not Resolved]
  - Platelet count decreased [Not Recovered/Not Resolved]

NARRATIVE: CASE EVENT DATE: 20240130
